APPROVED DRUG PRODUCT: LEVONORGESTREL AND ETHINYL ESTRADIOL
Active Ingredient: ETHINYL ESTRADIOL; LEVONORGESTREL
Strength: 0.03MG;0.15MG
Dosage Form/Route: TABLET;ORAL-28
Application: A207033 | Product #001 | TE Code: AB
Applicant: NAARI PTE LTD
Approved: Oct 9, 2020 | RLD: No | RS: No | Type: RX